FAERS Safety Report 6360916-6 (Version None)
Quarter: 2009Q3

REPORT INFORMATION
  Report Type: 
  Country: None (occurrence: None)
  Receive Date: 20090918
  Receipt Date: 20090909
  Transmission Date: 20100115
  Serious: Yes (Other)
  Sender: FDA-Public Use
  Company Number: GB-NOVOPROD-290998

PATIENT
  Sex: Female

DRUGS (2)
  1. MIXTARD HUMAN 70/30 [Suspect]
     Indication: TYPE 2 DIABETES MELLITUS
     Dosage: 36 IU, QD (24+12)
     Route: 058
     Dates: start: 20090801
  2. EPILIM [Concomitant]
     Route: 048

REACTIONS (2)
  - MALAISE [None]
  - PRODUCT QUALITY ISSUE [None]
